FAERS Safety Report 15263986 (Version 1)
Quarter: 2018Q3

REPORT INFORMATION
  Report Type: Spontaneous
  Country: US (occurrence: US)
  Receive Date: 20180810
  Receipt Date: 20180810
  Transmission Date: 20181010
  Serious: No
  Sender: FDA-Public Use
  Company Number: US-009507513-1807USA007190

PATIENT
  Age: 29 Year
  Sex: Female
  Weight: 114 kg

DRUGS (2)
  1. NEXPLANON [Suspect]
     Active Substance: ETONOGESTREL
     Indication: CONTRACEPTION
     Dosage: 1 ROD, Q3Y
     Route: 058
     Dates: start: 20171019, end: 20180713
  2. NEXPLANON [Suspect]
     Active Substance: ETONOGESTREL
     Dosage: A NEW ROD
     Route: 059
     Dates: start: 20180713

REACTIONS (2)
  - Device breakage [Recovered/Resolved]
  - Device kink [Recovered/Resolved]

NARRATIVE: CASE EVENT DATE: 20180706
